FAERS Safety Report 20443991 (Version 2)
Quarter: 2022Q2

REPORT INFORMATION
  Report Type: Spontaneous
  Country: US (occurrence: US)
  Receive Date: 20220208
  Receipt Date: 20220630
  Transmission Date: 20220720
  Serious: No
  Sender: FDA-Public Use
  Company Number: US-SA-SAC20220202001694

PATIENT
  Age: 44 Year
  Sex: Female

DRUGS (1)
  1. DUPIXENT [Suspect]
     Active Substance: DUPILUMAB
     Indication: Dermatitis atopic
     Dosage: 300 MG, QOW
     Route: 058
     Dates: start: 20210527

REACTIONS (5)
  - Visual impairment [Unknown]
  - COVID-19 [Unknown]
  - Bronchitis [Unknown]
  - Musculoskeletal chest pain [Unknown]
  - Illness [Unknown]

NARRATIVE: CASE EVENT DATE: 20220601
